FAERS Safety Report 4864703-7 (Version None)
Quarter: 2005Q4

REPORT INFORMATION
  Report Type: 
  Country: None (occurrence: None)
  Receive Date: 20051222
  Receipt Date: 20050601
  Transmission Date: 20060501
  Serious: Yes (Death, Other)
  Sender: FDA-Public Use
  Company Number: US-MERCK-0506USA00702

PATIENT
  Age: 57 Year
  Sex: Male

DRUGS (1)
  1. VIOXX [Suspect]
     Route: 048
     Dates: end: 20030515

REACTIONS (8)
  - ADVERSE EVENT [None]
  - ARTHROPATHY [None]
  - CARDIAC DISORDER [None]
  - CARDIO-RESPIRATORY ARREST [None]
  - CHEST PAIN [None]
  - MYOCARDIAL INFARCTION [None]
  - PHANTOM PAIN [None]
  - WEIGHT DECREASED [None]
